FAERS Safety Report 13138623 (Version 2)
Quarter: 2017Q1

REPORT INFORMATION
  Report Type: Report from Study
  Country: US (occurrence: US)
  Receive Date: 20170123
  Receipt Date: 20170228
  Transmission Date: 20170428
  Serious: Yes (Death, Hospitalization, Other)
  Sender: FDA-Public Use
  Company Number: US-009507513-1701USA007981

PATIENT
  Age: 38 Year
  Sex: Male

DRUGS (2)
  1. KEYTRUDA [Suspect]
     Active Substance: PEMBROLIZUMAB
     Indication: MALIGNANT LYMPHOID NEOPLASM
     Dosage: 193 MG EVERY 3 WEEKS
     Route: 042
     Dates: start: 20151125, end: 20160316
  2. KEYTRUDA [Suspect]
     Active Substance: PEMBROLIZUMAB
     Indication: HISTIOCYTIC SARCOMA

REACTIONS (4)
  - Product use issue [Unknown]
  - Malaise [Unknown]
  - Dyspnoea [Unknown]
  - Malignant neoplasm progression [Fatal]

NARRATIVE: CASE EVENT DATE: 20151125
